FAERS Safety Report 9847148 (Version 2)
Quarter: 2014Q1

REPORT INFORMATION
  Report Type: Report from Study
  Country: US (occurrence: US)
  Receive Date: 20140127
  Receipt Date: 20140325
  Transmission Date: 20141002
  Serious: Yes (Death, Other)
  Sender: FDA-Public Use
  Company Number: US-GILEAD-2014-0092895

PATIENT
  Sex: Female

DRUGS (26)
  1. AZTREONAM LYSINE [Suspect]
     Indication: CYSTIC FIBROSIS LUNG
     Dosage: 75 MG, TID
     Route: 055
     Dates: start: 20100112, end: 20130522
  2. AZTREONAM LYSINE [Suspect]
     Indication: PSEUDOMONAS INFECTION
  3. NAC                                /00082801/ [Concomitant]
     Dosage: 600 MG, QHS
     Route: 048
     Dates: start: 20130709
  4. VITAMIN C                          /00008001/ [Concomitant]
     Dosage: 500 MG, QHS
     Route: 048
     Dates: start: 20120906
  5. CALCIUM CITRATE [Concomitant]
     Dosage: 950 MG, BID
     Route: 048
     Dates: start: 20130709
  6. ZYRTEC [Concomitant]
     Dosage: 10 MG, QD IN AM
     Route: 048
     Dates: start: 20120731
  7. VITAMIN D3 [Concomitant]
     Dosage: 1 1000 UNIT CAPSULE (DF), QHS
     Route: 048
     Dates: start: 20130916
  8. PULMOZYME [Concomitant]
     Dosage: 2.5 MG, QD
     Route: 055
     Dates: start: 20131209
  9. NEXIUM                             /01479302/ [Concomitant]
     Dosage: 20 MG, QHS
     Route: 048
     Dates: start: 20131209
  10. LO LOESTRIN FE [Concomitant]
     Dosage: 1 MG, QD
     Route: 048
     Dates: start: 20140111
  11. VERAMYST [Concomitant]
     Dosage: 1 SPRAY, BOTH NOSTRILS (DF), BID PRN
     Route: 045
     Dates: start: 20120906
  12. NORCO [Concomitant]
     Indication: PAIN
     Dosage: 1 TABLET (DF), Q6HRS PRN
     Route: 048
     Dates: start: 20131224
  13. HUMALOG [Concomitant]
     Dosage: UNK
     Route: 050
     Dates: start: 20130829
  14. XOPENEX [Concomitant]
     Dosage: 1.25 MG, Q4HR
     Route: 055
     Dates: start: 20131209
  15. MIRTAZAPINE [Concomitant]
     Dosage: 15 MG, QHS
     Route: 048
     Dates: start: 20131106
  16. ZOFRAN                             /00955301/ [Concomitant]
     Indication: NAUSEA
     Dosage: 4 MG, Q6HR PRN
     Route: 048
     Dates: start: 20131106
  17. ZOFRAN                             /00955301/ [Concomitant]
     Indication: VOMITING
  18. CREON 5 [Concomitant]
     Indication: CONSTIPATION
     Dosage: 1 CAPSULE (DF), Q4HR
     Route: 050
  19. CREON 5 [Concomitant]
     Dosage: 3-4 CAPSULES (DF), WITH MEALS
     Route: 048
  20. CREON 5 [Concomitant]
     Dosage: 2 CAPSULES (DF), WITH SNACKS
     Route: 048
  21. MIRALAX                            /00754501/ [Concomitant]
     Indication: CONSTIPATION
     Dosage: 17 G, TID PRN
     Route: 048
     Dates: start: 20131106
  22. SIMETHICONE [Concomitant]
     Indication: FLATULENCE
     Dosage: 80 MG, QID PRN
     Route: 048
     Dates: start: 20131106
  23. URSODIOL [Concomitant]
     Dosage: 300 MG, BID
     Route: 048
     Dates: start: 20120906
  24. ZOLPIDEM [Concomitant]
     Indication: INSOMNIA
     Dosage: 7.5 MG, QHS PRN
     Route: 048
     Dates: start: 20131224
  25. METOPROLOL [Concomitant]
     Dosage: 25 MG, Q8HRS
     Route: 048
     Dates: start: 20140110
  26. AQUADEKS                           /07679501/ [Concomitant]
     Dosage: 1 CAPSULE (DF), BID
     Route: 048
     Dates: start: 20130905

REACTIONS (2)
  - Infective pulmonary exacerbation of cystic fibrosis [Fatal]
  - Organ failure [Fatal]
